FAERS Safety Report 10193750 (Version 2)
Quarter: 2014Q2

REPORT INFORMATION
  Report Type: Spontaneous
  Country: US (occurrence: US)
  Receive Date: 20140524
  Receipt Date: 20140620
  Transmission Date: 20141212
  Serious: Yes (Hospitalization)
  Sender: FDA-Public Use
  Company Number: US-SA-2014SA001615

PATIENT
  Age: 48 Year
  Sex: Female
  Weight: 66.5 kg

DRUGS (6)
  1. LANTUS SOLOSTAR [Suspect]
     Indication: DIABETES MELLITUS
     Route: 065
     Dates: end: 201312
  2. SOLOSTAR [Concomitant]
  3. LORAZEPAM [Concomitant]
     Indication: ANXIETY
  4. METOPROLOL [Concomitant]
  5. ONDANSETRON [Concomitant]
  6. OXYCODONE [Concomitant]

REACTIONS (4)
  - Investigation [Unknown]
  - Throat irritation [Recovered/Resolved]
  - Anxiety [Recovered/Resolved]
  - Headache [Recovered/Resolved]
